FAERS Safety Report 6441836-5 (Version None)
Quarter: 2009Q4

REPORT INFORMATION
  Report Type: 
  Country: None (occurrence: None)
  Receive Date: 20091116
  Receipt Date: 20091105
  Transmission Date: 20100525
  Serious: Yes (Other)
  Sender: FDA-Public Use
  Company Number: US-EISAI INC.-E3810-03296-SPO-US

PATIENT
  Age: 72 Year
  Sex: Male

DRUGS (1)
  1. ACIPHEX [Suspect]
     Route: 048
     Dates: start: 20000101

REACTIONS (6)
  - ACNE [None]
  - CONSTIPATION [None]
  - INAPPROPRIATE SCHEDULE OF DRUG ADMINISTRATION [None]
  - PERIRECTAL ABSCESS [None]
  - PROSTATE CANCER [None]
  - WEIGHT DECREASED [None]
